FAERS Safety Report 8147017-1 (Version None)
Quarter: 2012Q1

REPORT INFORMATION
  Report Type: 
  Country: None (occurrence: None)
  Receive Date: 20120217
  Receipt Date: 20120208
  Transmission Date: 20120608
  Serious: Yes (Hospitalization, Disabling, Other)
  Sender: FDA-Public Use
  Company Number: US-ASTRAZENECA-2011SE24659

PATIENT
  Age: 61 Year
  Sex: Female

DRUGS (27)
  1. CORAL CALCIUM [Concomitant]
     Dosage: 3/DAY
  2. ZICAM [Concomitant]
     Indication: SEASONAL ALLERGY
  3. MUCINEX [Concomitant]
  4. LORATADINE [Concomitant]
  5. ALENDRONATE SODIUM [Concomitant]
     Indication: OSTEOPOROSIS PROPHYLAXIS
  6. FISH OIL [Concomitant]
     Indication: MEDICAL DIET
  7. ASPIRIN [Concomitant]
     Indication: CARDIAC DISORDER
  8. RESVERATROL [Concomitant]
  9. PROVERA [Concomitant]
     Indication: MENOPAUSE
  10. NEXIUM [Suspect]
     Indication: GASTRITIS
     Route: 048
  11. EFFEXOR XR [Concomitant]
  12. ZOLPIDEM [Concomitant]
     Indication: SLEEP DISORDER
  13. DIAZEPAM [Concomitant]
     Indication: STRESS
  14. DHA [Concomitant]
  15. EFFEXOR XR [Concomitant]
     Indication: DEPRESSION
  16. NEILMED SINUS RINSE [Concomitant]
     Indication: CHRONIC SINUSITIS
     Dosage: 1-2 /DAY
  17. CO Q-10 [Concomitant]
     Indication: CARDIAC DISORDER
  18. NAPROXEN (ALEVE) [Concomitant]
     Dosage: 220MG 2-4/DAY
  19. VIVELLE-DOT [Concomitant]
     Indication: MENOPAUSE
     Dosage: 0.1, TWO PER WEEK
  20. NEXIUM [Suspect]
     Indication: GASTRIC ULCER
     Route: 048
  21. MUCINEX [Concomitant]
  22. EFFEXOR XR [Concomitant]
     Indication: STRESS
  23. EFFEXOR XR [Concomitant]
  24. OSTEO BI-FLEX [Concomitant]
     Indication: ARTHRALGIA
  25. DIAZEPAM [Concomitant]
     Indication: MENOPAUSE
  26. COLON CLEAR FORMULA [Concomitant]
     Indication: MEDICAL DIET
  27. OMEGA 3 6 9 [Concomitant]

REACTIONS (36)
  - ANKLE FRACTURE [None]
  - ASTHENIA [None]
  - PERIARTHRITIS [None]
  - HERPES ZOSTER [None]
  - INFECTION [None]
  - SPEECH DISORDER [None]
  - VASCULAR STENOSIS [None]
  - BACK INJURY [None]
  - BONE PAIN [None]
  - ARTHRALGIA [None]
  - DEPRESSION [None]
  - ARTHRITIS [None]
  - PAIN IN EXTREMITY [None]
  - PAIN [None]
  - DYSSTASIA [None]
  - TENSION HEADACHE [None]
  - RASH [None]
  - HAND FRACTURE [None]
  - JOINT DISLOCATION [None]
  - ROTATOR CUFF SYNDROME [None]
  - MALAISE [None]
  - ARTHROPATHY [None]
  - JOINT RANGE OF MOTION DECREASED [None]
  - DISABILITY [None]
  - BLOOD CHOLESTEROL INCREASED [None]
  - IMPAIRED DRIVING ABILITY [None]
  - OSTEOPENIA [None]
  - BACK PAIN [None]
  - NECK PAIN [None]
  - MULTIPLE ALLERGIES [None]
  - JOINT SWELLING [None]
  - ACCIDENT [None]
  - FALL [None]
  - HYPERTENSION [None]
  - GAIT DISTURBANCE [None]
  - NASOPHARYNGITIS [None]
